FAERS Safety Report 22636234 (Version 1)
Quarter: 2023Q2

REPORT INFORMATION
  Report Type: Spontaneous
  Country: US (occurrence: None)
  Receive Date: 20230621
  Receipt Date: 20230621
  Transmission Date: 20230721
  Serious: No
  Sender: FDA-Public Use
  Company Number: None

PATIENT
  Sex: Female

DRUGS (18)
  1. CAPECITABINE [Suspect]
     Active Substance: CAPECITABINE
     Indication: Pancreatic carcinoma
     Dosage: FREQUENCY : TWICE A DAY; ONDAY-FRIDAY ON RADIATION?
     Route: 048
  2. ACIDOPHILUS [Concomitant]
     Active Substance: LACTOBACILLUS ACIDOPHILUS
  3. AVAPRO [Concomitant]
     Active Substance: IRBESARTAN
  4. BENADRYL [Concomitant]
     Active Substance: DIPHENHYDRAMINE HYDROCHLORIDE
  5. CALCIUM CARBONATE [Concomitant]
     Active Substance: CALCIUM CARBONATE
  6. COLACE [Concomitant]
     Active Substance: DOCUSATE SODIUM
  7. CREON [Concomitant]
     Active Substance: PANCRELIPASE AMYLASE\PANCRELIPASE LIPASE\PANCRELIPASE PROTEASE
  8. KLOR-CON [Concomitant]
     Active Substance: POTASSIUM CHLORIDE
  9. LEVOTHYROXINE [Concomitant]
     Active Substance: LEVOTHYROXINE
  10. MEDOL [Concomitant]
  11. MIRALAX [Concomitant]
     Active Substance: POLYETHYLENE GLYCOL 3350
  12. IRON\VITAMINS [Concomitant]
     Active Substance: IRON\VITAMINS
  13. NORVASC [Concomitant]
     Active Substance: AMLODIPINE BESYLATE
  14. PEPCID [Concomitant]
     Active Substance: FAMOTIDINE
  15. SALIVAMAX [Concomitant]
  16. SIMETHICONE (DIMETHICONE) [Concomitant]
     Active Substance: DIMETHICONE
  17. VITAMIN D NOS [Concomitant]
     Active Substance: VITAMIN D NOS
  18. XELODA [Concomitant]
     Active Substance: CAPECITABINE

REACTIONS (1)
  - White blood cell disorder [None]
